FAERS Safety Report 9305593 (Version 1)
Quarter: 2013Q2

REPORT INFORMATION
  Report Type: Spontaneous
  Country: US (occurrence: None)
  Receive Date: 20130520
  Receipt Date: 20130520
  Transmission Date: 20140414
  Serious: Yes (Other)
  Sender: FDA-Public Use
  Company Number: CA-ALSI-201300115

PATIENT
  Age: 7 Month
  Sex: Female
  Weight: 9.6 kg

DRUGS (5)
  1. NITROUS OXIDE [Suspect]
     Indication: GENERAL ANAESTHESIA
     Route: 055
  2. NITROUS OXIDE [Suspect]
     Indication: GENERAL ANAESTHESIA
     Route: 055
  3. OXYGEN [Concomitant]
  4. DEXTROSE [Concomitant]
  5. HALOTHANE [Concomitant]

REACTIONS (6)
  - Blood glucose decreased [None]
  - Oxygen saturation decreased [None]
  - Syncope [None]
  - Pain [None]
  - Hypoglycaemic seizure [None]
  - Grand mal convulsion [None]
